FAERS Safety Report 5628415-4 (Version None)
Quarter: 2008Q1

REPORT INFORMATION
  Report Type: 
  Country: None (occurrence: None)
  Receive Date: 20080131
  Receipt Date: 20070731
  Transmission Date: 20080703
  Serious: No
  Sender: FDA-Public Use
  Company Number: 163-20785-07080041

PATIENT
  Age: 70 Year
  Sex: Male

DRUGS (4)
  1. THALOMID [Suspect]
     Indication: PROSTATE CANCER
     Dosage: 50 MG, 1 IN 1 D, ORAL; 50 - 100 MG, DAILY, ORAL
     Route: 048
     Dates: start: 20050926, end: 20060101
  2. THALOMID [Suspect]
     Indication: PROSTATE CANCER
     Dosage: 50 MG, 1 IN 1 D, ORAL; 50 - 100 MG, DAILY, ORAL
     Route: 048
     Dates: start: 20060818, end: 20070701
  3. REVLIMID [Suspect]
     Indication: PROSTATE CANCER
     Dosage: 5 MG, 1 IN 1 D, ORAL; 1.6667 MG, 1 IN 3 D, ORAL
     Route: 048
     Dates: start: 20060220, end: 20060801
  4. REVLIMID [Suspect]
     Indication: PROSTATE CANCER
     Dosage: 5 MG, 1 IN 1 D, ORAL; 1.6667 MG, 1 IN 3 D, ORAL
     Route: 048
     Dates: start: 20070111

REACTIONS (1)
  - CONDITION AGGRAVATED [None]
